FAERS Safety Report 8503116-3 (Version None)
Quarter: 2012Q2

REPORT INFORMATION
  Report Type: 
  Country: None (occurrence: None)
  Receive Date: 20120405
  Receipt Date: 20100601
  Transmission Date: 20120825
  Serious: Yes (Other)
  Sender: FDA-Public Use
  Company Number: PHHY2010US24991

PATIENT
  Age: 67 Year
  Sex: Female

DRUGS (6)
  1. SODIUM CHLORIDE [Concomitant]
  2. RECLAST [Suspect]
     Indication: OSTEOPOROSIS
     Dosage: 5MG, INTRAVENOUS
     Route: 042
     Dates: start: 20100415, end: 20100415
  3. BENADRYL (AMMONIUM CHLORDIE, DIPHENHYDRAMINE HYDROCHLORIDE, MENTHOL,SO [Concomitant]
  4. AMOXICILLIN AND CLAVULANATE POTASSIUM [Concomitant]
  5. VITAMIN D [Concomitant]
  6. ASCORBIC ACID [Concomitant]

REACTIONS (3)
  - THROAT TIGHTNESS [None]
  - DIZZINESS [None]
  - BLOOD PRESSURE DECREASED [None]
